FAERS Safety Report 12433967 (Version 2)
Quarter: 2016Q2

REPORT INFORMATION
  Report Type: Spontaneous
  Country: US (occurrence: US)
  Receive Date: 20160603
  Receipt Date: 20160613
  Transmission Date: 20160815
  Serious: Yes (Other)
  Sender: FDA-Public Use
  Company Number: US-BAYER-2016-102390

PATIENT
  Age: 59 Year
  Sex: Male

DRUGS (1)
  1. KOGENATE FS [Suspect]
     Active Substance: ANTIHEMOPHILIC FACTOR, HUMAN RECOMBINANT
     Indication: FACTOR VIII DEFICIENCY
     Dosage: 4000 UNITS, TIW AND PRN PER RX
     Route: 042
     Dates: start: 201601

REACTIONS (2)
  - Haemorrhage [None]
  - Product use issue [None]

NARRATIVE: CASE EVENT DATE: 201605
